FAERS Safety Report 8682453 (Version 3)
Quarter: 2013Q1

REPORT INFORMATION
  Report Type: Spontaneous
  Country: CN (occurrence: CN)
  Receive Date: 20120725
  Receipt Date: 20130219
  Transmission Date: 20140127
  Serious: Yes (Death)
  Sender: FDA-Public Use
  Company Number: CN-MPIJNJ-2012-05125

PATIENT
  Sex: 0

DRUGS (5)
  1. VELCADE [Suspect]
     Indication: PLASMA CELL MYELOMA
  2. CISPLATIN [Suspect]
     Indication: PLASMA CELL MYELOMA
     Dosage: 30 MG, CYCLIC
  3. ETOPOSIDE [Suspect]
     Indication: PLASMA CELL MYELOMA
     Dosage: 100 MG, CYCLIC
  4. CYCLOPHOSPHAMIDE [Suspect]
     Indication: PLASMA CELL MYELOMA
     Dosage: 500 MG, CYCLIC
  5. PREDNISONE [Suspect]
     Indication: PLASMA CELL MYELOMA
     Dosage: 1 MG/KG, CYCLIC

REACTIONS (1)
  - Plasma cell myeloma [Fatal]
